FAERS Safety Report 16802950 (Version 1)
Quarter: 2019Q3

REPORT INFORMATION
  Report Type: Report from Study
  Country: None (occurrence: US)
  Receive Date: 20190913
  Receipt Date: 20190913
  Transmission Date: 20191005
  Serious: Yes (Other)
  Sender: FDA-Public Use
  Company Number: US-ABBVIE-19K-163-2921915-00

PATIENT
  Age: 68 Year
  Sex: Female

DRUGS (1)
  1. CREON [Suspect]
     Active Substance: PANCRELIPASE AMYLASE\PANCRELIPASE LIPASE\PANCRELIPASE PROTEASE
     Indication: PRODUCT USED FOR UNKNOWN INDICATION
     Route: 048

REACTIONS (9)
  - Rotator cuff repair [Unknown]
  - Cholecystectomy [Unknown]
  - Oophorectomy [Unknown]
  - Carpal tunnel syndrome [Unknown]
  - Malabsorption [Unknown]
  - Diarrhoea [Unknown]
  - Hip arthroplasty [Unknown]
  - Breast cyst [Unknown]
  - Hernia [Unknown]

NARRATIVE: CASE EVENT DATE: 201704
